FAERS Safety Report 6542477-1 (Version None)
Quarter: 2010Q1

REPORT INFORMATION
  Report Type: 
  Country: None (occurrence: None)
  Receive Date: 20100119
  Receipt Date: 20100114
  Transmission Date: 20100710
  Serious: Yes (Other)
  Sender: FDA-Public Use
  Company Number: US-ELI_LILLY_AND_COMPANY-US201001002705

PATIENT
  Age: 60 Year
  Sex: Male

DRUGS (1)
  1. HUMAN INSULIN (RDNA ORIGIN) [Suspect]

REACTIONS (2)
  - DIABETIC VASCULAR DISORDER [None]
  - LEG AMPUTATION [None]
